FAERS Safety Report 25104817 (Version 1)
Quarter: 2025Q1

REPORT INFORMATION
  Report Type: Spontaneous
  Country: US (occurrence: None)
  Receive Date: 20250320
  Receipt Date: 20250320
  Transmission Date: 20250409
  Serious: No
  Sender: FDA-CTU
  Company Number: None

PATIENT
  Age: 82 Year
  Sex: Male
  Weight: 85.5 kg

DRUGS (19)
  1. TOPIRAMATE [Suspect]
     Active Substance: TOPIRAMATE
     Indication: Essential tremor
     Dosage: 120 TABLETS 3 TIMES A DAY ORAL
     Route: 048
     Dates: start: 20250209, end: 20250314
  2. IRON DEXTRAN [Suspect]
     Active Substance: IRON DEXTRAN
  3. DEVICE [Concomitant]
     Active Substance: DEVICE
  4. ATORVASTATIN [Concomitant]
     Active Substance: ATORVASTATIN
  5. BACLOFEN [Concomitant]
     Active Substance: BACLOFEN
  6. LOSARTAN [Concomitant]
     Active Substance: LOSARTAN
  7. POTASSIUM [Concomitant]
     Active Substance: POTASSIUM
  8. TYLENOL [Concomitant]
     Active Substance: ACETAMINOPHEN
  9. ASPIRIN [Concomitant]
     Active Substance: ASPIRIN
  10. Centrum Silver-Men 50+ [Concomitant]
  11. Citracal Petites + D3 [Concomitant]
  12. COENZYME Q10 [Concomitant]
     Active Substance: DIETARY SUPPLEMENT\UBIDECARENONE
  13. MAGNESIUM [Concomitant]
     Active Substance: MAGNESIUM
  14. Neuriva Plus [Concomitant]
  15. New Chapter Prostate [Concomitant]
  16. OCUVITE [Concomitant]
     Active Substance: VITAMINS
  17. FISH OIL\OMEGA-3 FATTY ACIDS [Concomitant]
     Active Substance: FISH OIL\OMEGA-3 FATTY ACIDS
  18. Osteo-BiFlex [Concomitant]
  19. VITAMIN K [Concomitant]
     Active Substance: PHYTONADIONE

REACTIONS (2)
  - Asthenia [None]
  - Photopsia [None]

NARRATIVE: CASE EVENT DATE: 20250209
